FAERS Safety Report 8619036 (Version 5)
Quarter: 2012Q4

REPORT INFORMATION
  Report Type: 
  Country: GB (occurrence: GB)
  Receive Date: 20120618
  Receipt Date: 20121005
  Transmission Date: 20130627
  Serious: Yes (Disabling, Other)
  Sender: FDA-Public Use
  Company Number: GB-SANOFI-AVENTIS-2012SA041359

PATIENT
  Age: 83 Year
  Sex: Female
  Weight: 50 kg

DRUGS (4)
  1. CLOPIDOGREL BISULFATE [Suspect]
     Indication: DRUG USE FOR UNKNOWN INDICATION
     Dosage: dose: 75 (units unspecified)
     Route: 048
     Dates: start: 20120504, end: 20120518
  2. ZOCOR [Suspect]
     Indication: DRUG USE FOR UNKNOWN INDICATION
     Dosage: Dose: 40 (units unspecified)
     Route: 065
     Dates: start: 20120504, end: 20120518
  3. CITALOPRAM [Concomitant]
     Indication: ANXIETY
     Dosage: dose: 10 (units unspecified)
  4. CITALOPRAM [Concomitant]
     Indication: DEPRESSION
     Dosage: dose: 10 (units unspecified)

REACTIONS (3)
  - Panic attack [Recovering/Resolving]
  - Drug interaction [Recovering/Resolving]
  - Anxiety [Recovering/Resolving]
